FAERS Safety Report 10611350 (Version 3)
Quarter: 2015Q1

REPORT INFORMATION
  Report Type: Spontaneous
  Country: US (occurrence: US)
  Receive Date: 20141126
  Receipt Date: 20150309
  Transmission Date: 20150720
  Serious: No
  Sender: FDA-Public Use
  Company Number: US-PFIZER INC-2014322324

PATIENT
  Age: 47 Year
  Sex: Female
  Weight: 73 kg

DRUGS (11)
  1. METHOCARBAMOL. [Concomitant]
     Active Substance: METHOCARBAMOL
     Dosage: 500 MG, 2X/DAY
     Route: 048
  2. PREDNISONE. [Concomitant]
     Active Substance: PREDNISONE
     Dosage: 10 MG, DAILY
     Route: 048
  3. LISINOPRIL. [Concomitant]
     Active Substance: LISINOPRIL
     Dosage: 10 MG, 1X/DAY
     Route: 048
     Dates: start: 20140412
  4. NEURONTIN [Suspect]
     Active Substance: GABAPENTIN
     Indication: NEURALGIA
     Dosage: 300 MG, 1X/DAY
  5. PROZAC [Concomitant]
     Active Substance: FLUOXETINE HYDROCHLORIDE
     Dosage: 20 MG, DAILY
     Dates: start: 20141204
  6. LIPITOR [Concomitant]
     Active Substance: ATORVASTATIN CALCIUM
     Dosage: 20 MG, 1X/DAY
     Route: 048
     Dates: start: 20140412
  7. NEURONTIN [Suspect]
     Active Substance: GABAPENTIN
     Indication: PAIN
     Dosage: 600 MG, 3X/DAY
     Route: 048
     Dates: start: 20141118, end: 20141118
  8. SINEQUAN [Concomitant]
     Active Substance: DOXEPIN HYDROCHLORIDE
     Dosage: 25 MG, 1X/DAY (AT BED TIME)
     Route: 048
     Dates: start: 20141204
  9. NORCO [Concomitant]
     Active Substance: ACETAMINOPHEN\HYDROCODONE BITARTRATE
     Dosage: UNK (HYDROCODONE BITARTRATE 10 MG+ PARACETAMOL 325 MG)
     Route: 048
     Dates: start: 20141204
  10. COENZYME Q10 [Concomitant]
     Active Substance: UBIDECARENONE
  11. KLONOPIN [Concomitant]
     Active Substance: CLONAZEPAM
     Dosage: 1 MG, 2X/DAY
     Route: 048
     Dates: start: 20141204

REACTIONS (6)
  - Gingival erythema [Recovered/Resolved]
  - Dysgeusia [Recovered/Resolved]
  - Oral pain [Recovered/Resolved]
  - Swollen tongue [Recovered/Resolved]
  - Oral mucosal blistering [Recovered/Resolved]
  - Gingival blister [Recovered/Resolved]

NARRATIVE: CASE EVENT DATE: 201406
